FAERS Safety Report 15777155 (Version 3)
Quarter: 2019Q2

REPORT INFORMATION
  Report Type: Spontaneous
  Country: US (occurrence: US)
  Receive Date: 20181231
  Receipt Date: 20190521
  Transmission Date: 20190711
  Serious: No
  Sender: FDA-Public Use
  Company Number: US-PFIZER INC-2018535383

PATIENT
  Age: 74 Year
  Sex: Female

DRUGS (1)
  1. XELJANZ XR [Suspect]
     Active Substance: TOFACITINIB CITRATE
     Indication: RHEUMATOID ARTHRITIS
     Dosage: 11 MG, DAILY
     Route: 048
     Dates: start: 201812

REACTIONS (6)
  - Impaired healing [Unknown]
  - Blood pressure increased [Unknown]
  - Skin laceration [Unknown]
  - Gastrooesophageal reflux disease [Unknown]
  - Skin abrasion [Unknown]
  - Arthralgia [Unknown]

NARRATIVE: CASE EVENT DATE: 20181208
